FAERS Safety Report 10476340 (Version 2)
Quarter: 2014Q3

REPORT INFORMATION
  Report Type: Report from Study
  Country: US (occurrence: US)
  Receive Date: 20140925
  Receipt Date: 20140925
  Transmission Date: 20150326
  Serious: Yes (Other)
  Sender: FDA-Public Use
  Company Number: US-ASTRAZENECA-2014SE62334

PATIENT
  Age: 89 Year
  Sex: Female

DRUGS (10)
  1. ATENOLOL. [Suspect]
     Active Substance: ATENOLOL
     Route: 048
  2. LOSARTAN [Concomitant]
     Active Substance: LOSARTAN
     Route: 048
  3. KLOR-CON [Concomitant]
     Active Substance: POTASSIUM CHLORIDE
     Dosage: 10 10 MEQ BID
  4. COENZYME Q10 [Concomitant]
     Active Substance: UBIDECARENONE
     Route: 048
  5. FUROSEMIDE. [Concomitant]
     Active Substance: FUROSEMIDE
     Route: 048
  6. VITAMIN D3 [Concomitant]
     Active Substance: CHOLECALCIFEROL
     Route: 048
  7. BRILINTA [Suspect]
     Active Substance: TICAGRELOR
     Indication: ACUTE CORONARY SYNDROME
     Route: 048
  8. ASPIRIN. [Concomitant]
     Active Substance: ASPIRIN
     Route: 048
  9. LEVOTHYROXINE [Concomitant]
     Active Substance: LEVOTHYROXINE
     Route: 048
  10. NITROGLYCERIN. [Concomitant]
     Active Substance: NITROGLYCERIN
     Dosage: 0.4 MG/DOSE
     Route: 060

REACTIONS (13)
  - Pruritus [Unknown]
  - Atrial fibrillation [Unknown]
  - Cardiac murmur [Unknown]
  - Haematoma [Unknown]
  - Rash [Unknown]
  - Dyspnoea [Unknown]
  - Diabetes mellitus [Unknown]
  - Gastric disorder [Unknown]
  - Aortic stenosis [Unknown]
  - Hypertension [Unknown]
  - Pulmonary hypertension [Unknown]
  - Anxiety [Unknown]
  - Gastrointestinal polyp haemorrhage [Unknown]
